FAERS Safety Report 21536669 (Version 1)
Quarter: 2022Q4

REPORT INFORMATION
  Report Type: Spontaneous
  Country: US (occurrence: US)
  Receive Date: 20221101
  Receipt Date: 20221101
  Transmission Date: 20230113
  Serious: No
  Sender: FDA-Public Use
  Company Number: US-PFIZER INC-202201262492

PATIENT
  Age: 59 Year
  Sex: Female
  Weight: 89.81 kg

DRUGS (2)
  1. HYDROXYZINE PAMOATE [Suspect]
     Active Substance: HYDROXYZINE PAMOATE
     Indication: Rash
     Dosage: 10 MG (TAKE TWO AND TAKE THAT EVERY 6 HOURS, FOR THREE TIMES A DAY)
  2. HYDROXYZINE PAMOATE [Suspect]
     Active Substance: HYDROXYZINE PAMOATE
     Indication: Pruritus

REACTIONS (2)
  - Drug ineffective [Unknown]
  - Off label use [Unknown]
